FAERS Safety Report 7314106-0 (Version None)
Quarter: 2011Q1

REPORT INFORMATION
  Report Type: 
  Country: None (occurrence: None)
  Receive Date: 20110225
  Receipt Date: 20100505
  Transmission Date: 20110831
  Serious: No
  Sender: FDA-Public Use
  Company Number: US-MYLANLABS-2010S1007975

PATIENT
  Age: 20 Year
  Sex: Female

DRUGS (3)
  1. AMNESTEEM [Suspect]
     Route: 048
     Dates: start: 20100208, end: 20100412
  2. YAZ /01502501/ [Concomitant]
  3. AMNESTEEM [Suspect]
     Indication: ACNE
     Route: 048
     Dates: start: 20100105, end: 20100503

REACTIONS (2)
  - DRY SKIN [None]
  - FUNGAL INFECTION [None]
